FAERS Safety Report 6222962-2 (Version None)
Quarter: 2009Q2

REPORT INFORMATION
  Report Type: 
  Country: None (occurrence: None)
  Receive Date: 20090609
  Receipt Date: 20090529
  Transmission Date: 20091009
  Serious: Yes (Hospitalization, Disabling, Other)
  Sender: FDA-Public Use
  Company Number: 2009AP002208

PATIENT
  Age: 82 Year
  Sex: Female

DRUGS (8)
  1. ALENDRONATE SODIUM [Suspect]
     Indication: OSTEOPOROSIS POSTMENOPAUSAL
     Dosage: 70 MG, QW, PO
     Route: 048
  2. ASPIRIN [Concomitant]
  3. CODEINE SUL TAB [Concomitant]
  4. FUROSEMIDE [Concomitant]
  5. LANSOPRAZOLE [Concomitant]
  6. LISINOPRIL [Concomitant]
  7. LEVOTHYROXINE SODIUM [Concomitant]
  8. CYANOCOBALAMIN [Concomitant]

REACTIONS (2)
  - FEMUR FRACTURE [None]
  - PAIN IN EXTREMITY [None]
